FAERS Safety Report 9227296 (Version 3)
Quarter: 2013Q4

REPORT INFORMATION
  Report Type: Spontaneous
  Country: GB (occurrence: None)
  Receive Date: 20130410
  Receipt Date: 20131015
  Transmission Date: 20140711
  Serious: Yes (Death)
  Sender: FDA-Public Use
  Company Number: 1656887

PATIENT
  Age: 71 Year
  Sex: Female
  Weight: 56.9 kg

DRUGS (6)
  1. IRINOTECAN HYDROCHLORIDE [Suspect]
     Indication: COLON CANCER METASTATIC
     Route: 042
     Dates: start: 20130213, end: 20130213
  2. BEVACIZUMAB [Suspect]
     Indication: COLON CANCER METASTATIC
     Route: 042
     Dates: start: 20130213, end: 20130213
  3. CAPECITABINE [Suspect]
     Indication: COLON CANCER METASTATIC
     Route: 048
     Dates: start: 20130213, end: 20130221
  4. MORPHINE SULPHATE [Concomitant]
  5. LANSOPRAZOLE [Concomitant]
  6. ANTIHYPERTENSIVES [Concomitant]

REACTIONS (4)
  - Myocardial ischaemia [None]
  - Sudden death [None]
  - Pulmonary embolism [None]
  - Malaise [None]
